FAERS Safety Report 9448160 (Version 2)
Quarter: 2013Q3

REPORT INFORMATION
  Report Type: Spontaneous
  Country: IN (occurrence: None)
  Receive Date: 20130806
  Receipt Date: 20130819
  Transmission Date: 20140515
  Serious: Yes (Disabling)
  Sender: FDA-Public Use
  Company Number: IN-012510

PATIENT
  Age: 31 Year
  Sex: Female

DRUGS (3)
  1. GESTONETTE [Suspect]
     Indication: INFERTILITY
     Dates: start: 20130617, end: 20130718
  2. FOLIC ACID [Concomitant]
  3. ASPIRIN [Concomitant]

REACTIONS (6)
  - Rash erythematous [None]
  - Pruritus [None]
  - Lip oedema [None]
  - Swelling face [None]
  - Body temperature increased [None]
  - Hypersensitivity [None]
